FAERS Safety Report 8107977-1 (Version None)
Quarter: 2012Q1

REPORT INFORMATION
  Report Type: 
  Country: None (occurrence: None)
  Receive Date: 20120202
  Receipt Date: 20120120
  Transmission Date: 20120608
  Serious: Yes (Death)
  Sender: FDA-Public Use
  Company Number: RU-ACTELION-A-CH2012-60082

PATIENT
  Age: 30 Year
  Sex: Male

DRUGS (7)
  1. MILDRONAT [Concomitant]
  2. SILDENAFIL [Concomitant]
  3. UBIDECARENONE [Concomitant]
  4. VITAMIN A+E [Concomitant]
  5. THROMBO AS [Concomitant]
  6. TRACLEER [Suspect]
     Indication: PULMONARY ARTERIAL HYPERTENSION
     Dosage: 62.5 MG, BID
     Route: 048
     Dates: start: 20101201, end: 20110101
  7. TRACLEER [Suspect]
     Dosage: 125 MG, BID
     Route: 048
     Dates: start: 20110101, end: 20110801

REACTIONS (1)
  - PULMONARY OEDEMA [None]
